FAERS Safety Report 20211463 (Version 1)
Quarter: 2021Q4

REPORT INFORMATION
  Report Type: Spontaneous
  Country: CZ (occurrence: CZ)
  Receive Date: 20211221
  Receipt Date: 20211221
  Transmission Date: 20220303
  Serious: Yes (Other)
  Sender: FDA-Public Use
  Company Number: CZ-MYLANLABS-2021M1081453

PATIENT
  Age: 53 Year
  Sex: Male

DRUGS (4)
  1. METFORMIN [Interacting]
     Active Substance: METFORMIN HYDROCHLORIDE
     Indication: Type 2 diabetes mellitus
     Dosage: UNK
  2. INSULINUM GLARGINUM [Concomitant]
     Indication: Type 2 diabetes mellitus
     Dosage: UNK
  3. INSULINUM ASPARTUM [Concomitant]
     Indication: Type 2 diabetes mellitus
     Dosage: UNK
  4. RAMIPRIL [Concomitant]
     Active Substance: RAMIPRIL
     Indication: Hypertension
     Dosage: UNK

REACTIONS (3)
  - Hepatic function abnormal [Recovered/Resolved]
  - Drug interaction [Recovered/Resolved]
  - Drug intolerance [Unknown]
